FAERS Safety Report 7121722-8 (Version None)
Quarter: 2010Q4

REPORT INFORMATION
  Report Type: 
  Country: None (occurrence: None)
  Receive Date: 20101124
  Receipt Date: 20101119
  Transmission Date: 20110411
  Serious: Yes (Hospitalization, Other)
  Sender: FDA-Public Use
  Company Number: FR-SANOFI-AVENTIS-2010SA070270

PATIENT
  Age: 78 Year
  Sex: Male

DRUGS (11)
  1. AMAREL [Suspect]
     Route: 048
  2. TERALITHE [Suspect]
     Indication: DEPRESSION
     Route: 048
  3. STAGID [Concomitant]
     Route: 048
  4. ANAFRANIL [Concomitant]
     Route: 048
  5. SELEGILINE HCL [Concomitant]
     Indication: PARKINSON'S DISEASE
     Route: 048
  6. NIFEDIPINE [Concomitant]
     Route: 048
  7. BISOPROLOL FUMARATE [Concomitant]
     Route: 065
  8. FENOFIBRATE [Concomitant]
     Route: 065
  9. KARDEGIC [Concomitant]
     Route: 048
  10. SINEMET [Concomitant]
     Indication: PARKINSON'S DISEASE
     Route: 048
  11. NOOTROPYL [Concomitant]
     Route: 048

REACTIONS (4)
  - CREATININE RENAL CLEARANCE DECREASED [None]
  - HYPERTONIA [None]
  - HYPONATRAEMIA [None]
  - TREMOR [None]
